FAERS Safety Report 7003985-2 (Version None)
Quarter: 2010Q3

REPORT INFORMATION
  Report Type: 
  Country: None (occurrence: None)
  Receive Date: 20100920
  Receipt Date: 20100114
  Transmission Date: 20110219
  Serious: No
  Sender: FDA-Public Use
  Company Number: US-WYE-H13012410

PATIENT
  Sex: Female

DRUGS (4)
  1. PRISTIQ [Suspect]
     Indication: DEPRESSION
     Route: 048
     Dates: start: 20091001
  2. VERAPAMIL [Concomitant]
     Dosage: UNKNOWN
  3. ALPRAZOLAM [Concomitant]
     Dosage: UNKNOWN
  4. LEVAQUIN [Interacting]
     Indication: NASOPHARYNGITIS
     Dosage: UNKNOWN
     Dates: start: 20100101, end: 20100101

REACTIONS (3)
  - DRUG INTERACTION [None]
  - EYE SWELLING [None]
  - OEDEMA PERIPHERAL [None]
